FAERS Safety Report 4448407-0 (Version None)
Quarter: 2004Q3

REPORT INFORMATION
  Report Type: 
  Country: None (occurrence: None)
  Receive Date: 20040909
  Receipt Date: 20040831
  Transmission Date: 20050211
  Serious: Yes (Other)
  Sender: FDA-Public Use
  Company Number: 2004230394DE

PATIENT
  Age: 47 Year
  Sex: Male
  Weight: 80 kg

DRUGS (3)
  1. SOMAVERT [Suspect]
     Indication: ACROMEGALY
     Dosage: 15  MG, QD
     Dates: start: 20040212
  2. HYDROCORTISON [Concomitant]
  3. LEVOTHYROXINE SODIUM [Concomitant]

REACTIONS (2)
  - NEOPLASM RECURRENCE [None]
  - PITUITARY TUMOUR BENIGN [None]
